FAERS Safety Report 19495305 (Version 1)
Quarter: 2021Q3

REPORT INFORMATION
  Report Type: Spontaneous
  Country: US (occurrence: US)
  Receive Date: 20210705
  Receipt Date: 20210705
  Transmission Date: 20211014
  Serious: Yes (Other)
  Sender: FDA-Public Use
  Company Number: US-SUN PHARMACEUTICAL INDUSTRIES LTD-2021R1-302052

PATIENT
  Age: 51 Year
  Sex: Male

DRUGS (5)
  1. MORPHINE [Suspect]
     Active Substance: MORPHINE
     Indication: PAIN
     Dosage: 40 MCG PER HOUR
     Route: 037
  2. METHADONE [Concomitant]
     Active Substance: METHADONE HYDROCHLORIDE
     Indication: WITHDRAWAL SYNDROME
     Dosage: 40 MILLIGRAM, DAILY
     Route: 065
  3. MORPHINE [Suspect]
     Active Substance: MORPHINE
     Dosage: 1.2 MILLIGRAM, DAILY
     Route: 037
  4. MORPHINE [Suspect]
     Active Substance: MORPHINE
     Dosage: 2.4 MILLIGRAM, DAILY
     Route: 037
  5. MORPHINE [Suspect]
     Active Substance: MORPHINE
     Dosage: 50 MCG PER HOUR
     Route: 037

REACTIONS (1)
  - Arachnoiditis [Recovering/Resolving]
